FAERS Safety Report 9701603 (Version 2)
Quarter: 2013Q4

REPORT INFORMATION
  Report Type: Spontaneous
  Country: US (occurrence: US)
  Receive Date: 20131119
  Receipt Date: 20131119
  Transmission Date: 20140711
  Serious: No
  Sender: FDA-Public Use
  Company Number: US-ORACLE-2011S1000104

PATIENT
  Age: 55 Year
  Sex: Male

DRUGS (17)
  1. KRYSTEXXA INJECTION [Suspect]
     Indication: GOUTY ARTHRITIS
     Route: 042
     Dates: start: 20111021, end: 20111021
  2. KRYSTEXXA INJECTION [Suspect]
     Indication: GOUTY ARTHRITIS
     Route: 042
     Dates: start: 20111104, end: 20111104
  3. KRYSTEXXA INJECTION [Suspect]
     Indication: GOUTY ARTHRITIS
     Route: 042
     Dates: start: 20111007, end: 20111007
  4. KRYSTEXXA INJECTION [Suspect]
     Indication: GOUTY ARTHRITIS
     Route: 042
     Dates: start: 20110923, end: 20110923
  5. BENADRYL /00945501/ [Concomitant]
     Indication: PREMEDICATION
     Route: 048
     Dates: start: 20111104, end: 20111104
  6. BENADRYL /00945501/ [Concomitant]
     Indication: PREMEDICATION
     Route: 048
     Dates: start: 20111021, end: 20111021
  7. BENADRYL /00945501/ [Concomitant]
     Indication: PREMEDICATION
     Route: 048
     Dates: start: 20111007, end: 20111007
  8. BENADRYL /00945501/ [Concomitant]
     Indication: PREMEDICATION
     Route: 048
     Dates: start: 20110923, end: 20110923
  9. SOLU-MEDROL [Concomitant]
     Indication: PREMEDICATION
     Route: 042
     Dates: start: 20111104, end: 20111104
  10. SOLU-MEDROL [Concomitant]
     Indication: PREMEDICATION
     Route: 042
     Dates: start: 20111021, end: 20111021
  11. SOLU-MEDROL [Concomitant]
     Indication: PREMEDICATION
     Route: 042
     Dates: start: 20111007, end: 20111007
  12. SOLU-MEDROL [Concomitant]
     Indication: PREMEDICATION
     Route: 042
     Dates: start: 20110923, end: 20110923
  13. ASPIRIN [Concomitant]
     Indication: PRODUCT USED FOR UNKNOWN INDICATION
  14. COLCHICINE [Concomitant]
     Indication: GOUT
  15. PROBENECID [Concomitant]
     Indication: PRODUCT USED FOR UNKNOWN INDICATION
  16. METOPROLOL [Concomitant]
     Indication: HYPERTENSION
  17. BENAZEPRIL [Concomitant]
     Indication: PRODUCT USED FOR UNKNOWN INDICATION

REACTIONS (1)
  - Therapeutic response decreased [Unknown]
